FAERS Safety Report 18156238 (Version 1)
Quarter: 2020Q3

REPORT INFORMATION
  Report Type: Spontaneous
  Country: US (occurrence: US)
  Receive Date: 20200815
  Receipt Date: 20200815
  Transmission Date: 20201103
  Serious: No
  Sender: FDA-Public Use
  Company Number: None

PATIENT
  Age: 41 Year
  Sex: Female
  Weight: 81 kg

DRUGS (2)
  1. CIPRODEX [Suspect]
     Active Substance: CIPROFLOXACIN HYDROCHLORIDE\DEXAMETHASONE
     Indication: EAR INFECTION
     Dosage: ?          QUANTITY:4 DROP(S);?
     Route: 001
     Dates: start: 20200811, end: 20200814
  2. AMOXICILLIN. [Concomitant]
     Active Substance: AMOXICILLIN

REACTIONS (9)
  - Burning sensation [None]
  - Ear pain [None]
  - Crying [None]
  - Myalgia [None]
  - Product complaint [None]
  - Asthenia [None]
  - Ear swelling [None]
  - Chest discomfort [None]
  - Muscular weakness [None]

NARRATIVE: CASE EVENT DATE: 20200814
